FAERS Safety Report 6239050-1 (Version None)
Quarter: 2009Q2

REPORT INFORMATION
  Report Type: 
  Country: None (occurrence: None)
  Receive Date: 20090622
  Receipt Date: 20090616
  Transmission Date: 20091009
  Serious: Yes (Death, Other)
  Sender: FDA-Public Use
  Company Number: PHHY2009DE23866

PATIENT
  Age: 71 Year
  Sex: Male

DRUGS (3)
  1. EXJADE [Suspect]
     Indication: HAEMOSIDEROSIS
     Dosage: 12.5 MG/KG DAILY (1000 MG DAILY)
     Route: 048
  2. EXJADE [Suspect]
     Dosage: 25 MG/KG DAILY
     Route: 048
  3. EXJADE [Suspect]
     Dosage: 17.5 MG/KG (1500 MG DAILY)
     Route: 048

REACTIONS (3)
  - BLOOD CREATININE INCREASED [None]
  - CARDIOVASCULAR INSUFFICIENCY [None]
  - RENAL FAILURE [None]
